FAERS Safety Report 25265303 (Version 2)
Quarter: 2025Q2

REPORT INFORMATION
  Report Type: Spontaneous
  Country: US (occurrence: US)
  Receive Date: 20250502
  Receipt Date: 20250520
  Transmission Date: 20250717
  Serious: No
  Sender: MYLAN
  Company Number: US-MYLANLABS-2025M1030850

PATIENT
  Sex: Male
  Weight: 68.04 kg

DRUGS (4)
  1. TYRVAYA [Suspect]
     Active Substance: VARENICLINE TARTRATE
     Indication: Dry eye
     Dosage: 0.03 MILLIGRAM, BID (TWICE A DAY, 12 HOURS APART, IN HIS RIGHT NOSTRIL)
  2. TYRVAYA [Suspect]
     Active Substance: VARENICLINE TARTRATE
     Dosage: 0.03 MILLIGRAM, BID (TWICE A DAY, 12 HOURS APART, IN HIS RIGHT NOSTRIL)
  3. ALPHAGAN P [Concomitant]
     Active Substance: BRIMONIDINE TARTRATE
     Dosage: UNK, BID (TWICE DAILY)
  4. RESTASIS [Concomitant]
     Active Substance: CYCLOSPORINE

REACTIONS (7)
  - Dysgeusia [Unknown]
  - Oropharyngeal discomfort [Unknown]
  - Throat irritation [Unknown]
  - Therapeutic product effect decreased [Unknown]
  - Off label use [Unknown]
  - Wrong technique in product usage process [Unknown]
  - Product delivery mechanism issue [Unknown]

NARRATIVE: CASE EVENT DATE: 20250101
